FAERS Safety Report 9123913 (Version 4)
Quarter: 2014Q1

REPORT INFORMATION
  Report Type: Report from Study
  Country: GB (occurrence: GB)
  Receive Date: 20130227
  Receipt Date: 20140325
  Transmission Date: 20141002
  Serious: Yes (Hospitalization)
  Sender: FDA-Public Use
  Company Number: GB-ROCHE-1195886

PATIENT
  Age: 93 Year
  Sex: Male

DRUGS (2)
  1. RANIBIZUMAB [Suspect]
     Indication: PRODUCT USED FOR UNKNOWN INDICATION
     Route: 050
     Dates: start: 20110401
  2. RANIBIZUMAB [Suspect]
     Route: 050
     Dates: start: 20130222

REACTIONS (1)
  - Pneumonia [Recovered/Resolved]
